FAERS Safety Report 8980623 (Version 1)
Quarter: 2012Q4

REPORT INFORMATION
  Report Type: 
  Country: US (occurrence: US)
  Receive Date: 20121221
  Receipt Date: 20121221
  Transmission Date: 20130627
  Serious: Yes (Other)
  Sender: FDA-Public Use
  Company Number: US-TEVA-377244USA

PATIENT

DRUGS (3)
  1. TREANDA [Suspect]
  2. RITUXAN [Suspect]
  3. ALLOPURINOL [Suspect]

REACTIONS (1)
  - Toxic epidermal necrolysis [Unknown]
